FAERS Safety Report 14896407 (Version 1)
Quarter: 2018Q2

REPORT INFORMATION
  Report Type: Spontaneous
  Country: JP (occurrence: JP)
  Receive Date: 20180515
  Receipt Date: 20180515
  Transmission Date: 20180711
  Serious: Yes (Hospitalization)
  Sender: FDA-Public Use
  Company Number: JP-BAYER-200000063BYL

PATIENT
  Age: 69 Year
  Sex: Male
  Weight: 69 kg

DRUGS (15)
  1. ASPIRIN PLUS STOMACH GUARD [Concomitant]
     Route: 048
     Dates: start: 19981102, end: 20000120
  2. EUGLUCON [Concomitant]
     Active Substance: GLYBURIDE
     Dosage: DAILY DOSE 5 MG
     Route: 048
     Dates: start: 19980828, end: 19990318
  3. LASIX [Concomitant]
     Active Substance: FUROSEMIDE
     Dosage: DAILY DOSE 40 MG
     Route: 048
     Dates: start: 19981002, end: 19990221
  4. LANIRAPID [Concomitant]
     Active Substance: METILDIGOXIN
     Dosage: DAILY DOSE .1 MG
     Route: 048
     Dates: start: 19981002, end: 20000120
  5. GLIBENCLAMIDE [Concomitant]
     Active Substance: GLYBURIDE
     Dosage: 5 MG (DAILY DOSE), , ORAL
     Route: 048
     Dates: start: 19980828, end: 19990318
  6. FUROSEMIDE [FUROSEMIDE] [Concomitant]
     Active Substance: FUROSEMIDE
     Dosage: 20 MG (DAILY DOSE), , ORAL
     Route: 048
     Dates: start: 19990222, end: 20000120
  7. ISOSORBIDE DINITRATE. [Concomitant]
     Active Substance: ISOSORBIDE DINITRATE
     Dosage: 40 MG (DAILY DOSE), , ORAL
     Route: 048
     Dates: start: 19981002, end: 20000120
  8. KINEDAK [Concomitant]
     Active Substance: EPALRESTAT
     Dosage: DAILY DOSE 150 MG
     Route: 048
     Dates: start: 19990419, end: 20000120
  9. GLIBENCLAMIDE [Concomitant]
     Active Substance: GLYBURIDE
     Dosage: 7.5 MG (DAILY DOSE), , ORAL
     Route: 048
     Dates: start: 19990319, end: 20000120
  10. EPALRESTAT [Concomitant]
     Active Substance: EPALRESTAT
     Dosage: 150 MG (DAILY DOSE), , ORAL
     Route: 048
     Dates: start: 19990419, end: 20000120
  11. ITOROL [Concomitant]
     Active Substance: ISOSORBIDE MONONITRATE
     Dosage: DAILY DOSE 40 MG
     Route: 048
     Dates: start: 19981002, end: 20000120
  12. GLUCOBAY [Suspect]
     Active Substance: ACARBOSE
     Dosage: 150 MG (DAILY DOSE), , ORAL
     Route: 048
     Dates: start: 20000107, end: 20000120
  13. FUROSEMIDE [FUROSEMIDE] [Concomitant]
     Active Substance: FUROSEMIDE
     Dosage: 40 MG (DAILY DOSE), , ORAL
     Route: 048
     Dates: start: 19981002, end: 19990221
  14. BUFFERIN [Suspect]
     Active Substance: ASPIRIN
     Dosage: DAILY DOSE 1 DF
     Route: 048
     Dates: start: 19981102, end: 20000120
  15. METILDIGOXIN [Concomitant]
     Active Substance: METILDIGOXIN
     Dosage: .1 MG (DAILY DOSE), , ORAL
     Route: 048
     Dates: start: 19981021, end: 20000120

REACTIONS (1)
  - Gastric mucosal lesion [Recovering/Resolving]

NARRATIVE: CASE EVENT DATE: 20000120
